FAERS Safety Report 17140933 (Version 2)
Quarter: 2019Q4

REPORT INFORMATION
  Report Type: Spontaneous
  Country: US (occurrence: US)
  Receive Date: 20191211
  Receipt Date: 20191212
  Transmission Date: 20200122
  Serious: Yes (Other)
  Sender: FDA-Public Use
  Company Number: US-PFIZER INC-2019527094

PATIENT
  Age: 68 Year
  Sex: Male

DRUGS (5)
  1. SIMVASTATIN. [Suspect]
     Active Substance: SIMVASTATIN
     Dosage: UNK
  2. ELIQUIS [Suspect]
     Active Substance: APIXABAN
     Dosage: 5 MG, 2X/DAY
  3. METOPROLOL TARTRATE. [Suspect]
     Active Substance: METOPROLOL TARTRATE
     Dosage: UNK
  4. BABY ASPIRIN [Suspect]
     Active Substance: ASPIRIN
     Dosage: UNK
  5. VALIUM [Suspect]
     Active Substance: DIAZEPAM
     Dosage: UNK

REACTIONS (4)
  - Aphasia [Unknown]
  - Cardiac disorder [Unknown]
  - Anxiety [Unknown]
  - Cerebral haemorrhage [Unknown]
